FAERS Safety Report 7648131-7 (Version None)
Quarter: 2011Q3

REPORT INFORMATION
  Report Type: 
  Country: None (occurrence: None)
  Receive Date: 20110801
  Receipt Date: 20110728
  Transmission Date: 20111222
  Serious: Yes (Death, Life-Threatening, Hospitalization, Other)
  Sender: FDA-Public Use
  Company Number: JP-CEPHALON-2011003121

PATIENT
  Age: 63 Year
  Sex: Male
  Weight: 51 kg

DRUGS (12)
  1. FUROSEMIDE [Concomitant]
     Dates: start: 20110529
  2. FENTANYL CITRATE [Concomitant]
     Dates: start: 20110602
  3. PENTAMIDINE ISETHIONATE [Concomitant]
     Dates: start: 20110608, end: 20110608
  4. RITUXIMAB [Suspect]
     Indication: B-CELL LYMPHOMA
     Route: 042
     Dates: start: 20110602, end: 20110602
  5. AMINO ACIDS NOS W/CARBOHYD. NOS/ELECTROL. NOS [Concomitant]
  6. POLYETHYLENE GLYCOL [Concomitant]
     Dates: start: 20110606, end: 20110606
  7. BENDAMUSTINE HCL [Suspect]
     Indication: B-CELL LYMPHOMA
     Route: 042
     Dates: start: 20110603, end: 20110604
  8. SODIUM CHLORIDE [Concomitant]
  9. VALACYCLOVIR HYDROCHLORIDE [Concomitant]
     Dates: start: 20110611
  10. GLUCOSE [Concomitant]
  11. PREDNISOLONE [Concomitant]
     Dates: start: 20110602, end: 20110603
  12. DORIPENEM MONOHYDRATE [Concomitant]
     Dates: start: 20110606

REACTIONS (8)
  - BACTERAEMIA [None]
  - CONVULSION [None]
  - TUMOUR LYSIS SYNDROME [None]
  - HYPOXIA [None]
  - ATRIAL FLUTTER [None]
  - RESPIRATORY FAILURE [None]
  - BLOOD PRESSURE DECREASED [None]
  - LUNG INFILTRATION [None]
